FAERS Safety Report 18872368 (Version 1)
Quarter: 2021Q1

REPORT INFORMATION
  Report Type: Spontaneous
  Country: US (occurrence: US)
  Receive Date: 20210209
  Receipt Date: 20210209
  Transmission Date: 20210420
  Serious: No
  Sender: FDA-Public Use
  Company Number: None

PATIENT
  Age: 62 Year
  Sex: Female

DRUGS (1)
  1. TREMFYA [Suspect]
     Active Substance: GUSELKUMAB
     Indication: PSORIATIC ARTHROPATHY
     Dosage: FREQUENCY: WEEK 0 AND WEEK 4 AS DIRECTED
     Route: 058
     Dates: start: 202010

REACTIONS (2)
  - Sinusitis [None]
  - Intentional dose omission [None]
